FAERS Safety Report 23493730 (Version 4)
Quarter: 2024Q2

REPORT INFORMATION
  Report Type: Spontaneous
  Country: US (occurrence: US)
  Receive Date: 20240207
  Receipt Date: 20240409
  Transmission Date: 20240716
  Serious: Yes (Other)
  Sender: FDA-Public Use
  Company Number: US-SA-SAC20240131000852

PATIENT
  Age: 58 Year
  Sex: Female

DRUGS (7)
  1. DUPIXENT [Suspect]
     Active Substance: DUPILUMAB
     Indication: Asthma
     Dosage: 300 MG, QOW
     Route: 058
  2. OLOPATADINE [Concomitant]
     Active Substance: OLOPATADINE
  3. EPIPEN [Concomitant]
     Active Substance: EPINEPHRINE
  4. VENTOLIN HFA [Concomitant]
     Active Substance: ALBUTEROL SULFATE
  5. ALBUTEROL SULFATE [Concomitant]
     Active Substance: ALBUTEROL SULFATE
  6. SYMBICORT [Concomitant]
     Active Substance: BUDESONIDE\FORMOTEROL FUMARATE DIHYDRATE
     Dosage: UNK, BID
  7. BREO ELLIPTA [Concomitant]
     Active Substance: FLUTICASONE FUROATE\VILANTEROL TRIFENATATE
     Dosage: UNK UNK, QD

REACTIONS (11)
  - Postmenopausal haemorrhage [Unknown]
  - Uterine leiomyoma [Unknown]
  - Dry skin [Unknown]
  - Skin texture abnormal [Unknown]
  - Erythema [Not Recovered/Not Resolved]
  - Rash [Recovered/Resolved]
  - Skin exfoliation [Unknown]
  - Rash macular [Unknown]
  - Skin tightness [Unknown]
  - Skin discomfort [Unknown]
  - Eczema [Not Recovered/Not Resolved]

NARRATIVE: CASE EVENT DATE: 20231101
